FAERS Safety Report 15172247 (Version 1)
Quarter: 2018Q3

REPORT INFORMATION
  Report Type: Spontaneous
  Country: US (occurrence: US)
  Receive Date: 20180720
  Receipt Date: 20180720
  Transmission Date: 20181010
  Serious: No
  Sender: FDA-Public Use
  Company Number: US-BAYER-2018-133077

PATIENT
  Age: 57 Year
  Sex: Male
  Weight: 65.99 kg

DRUGS (1)
  1. MIRALAX [Suspect]
     Active Substance: POLYETHYLENE GLYCOL 3350
     Indication: GASTROINTESTINAL DISORDER
     Dosage: 17 G DOSE
     Route: 048
     Dates: start: 2017

REACTIONS (2)
  - Labelled drug-disease interaction medication error [Unknown]
  - Product use issue [Unknown]

NARRATIVE: CASE EVENT DATE: 2017
